FAERS Safety Report 9460674 (Version 2)
Quarter: 2013Q3

REPORT INFORMATION
  Report Type: Spontaneous
  Country: US (occurrence: US)
  Receive Date: 20130815
  Receipt Date: 20130920
  Transmission Date: 20140515
  Serious: No
  Sender: FDA-Public Use
  Company Number: US-RB-057157-13

PATIENT
  Age: 55 Year
  Sex: Female

DRUGS (3)
  1. SUBOXONE TABLET [Suspect]
     Indication: DRUG DEPENDENCE
     Route: 060
     Dates: start: 2007, end: 2011
  2. WELLBUTRIN [Concomitant]
     Indication: DEPRESSION
     Dosage: DOSING DETAILS UNKNOWN
     Route: 048
  3. IBUPROFEN [Concomitant]
     Indication: ARTHRALGIA
     Dosage: DOSING DETAILS UNKNOWN
     Route: 048

REACTIONS (1)
  - Therapeutic response unexpected [Recovered/Resolved]
